FAERS Safety Report 25230082 (Version 1)
Quarter: 2025Q2

REPORT INFORMATION
  Report Type: Spontaneous
  Country: US (occurrence: US)
  Receive Date: 20250423
  Receipt Date: 20250423
  Transmission Date: 20250717
  Serious: No
  Sender: JOHNSON AND JOHNSON
  Company Number: US-JNJFOC-20250389166

PATIENT
  Sex: Female

DRUGS (1)
  1. XARELTO [Suspect]
     Active Substance: RIVAROXABAN
     Indication: Thrombosis
     Route: 048
     Dates: start: 202410, end: 202501

REACTIONS (5)
  - Electric shock sensation [Unknown]
  - Pruritus [Unknown]
  - Migraine [Unknown]
  - Blood urine present [Recovered/Resolved]
  - Back pain [Recovered/Resolved]
